FAERS Safety Report 9974497 (Version 1)
Quarter: 2014Q1

REPORT INFORMATION
  Report Type: Report from Study
  Country: US (occurrence: US)
  Receive Date: 20140306
  Receipt Date: 20140306
  Transmission Date: 20141002
  Serious: No
  Sender: FDA-Public Use
  Company Number: US-ABBVIE-13P-163-1156107-00

PATIENT
  Age: 43 Year
  Sex: Female
  Weight: 52.66 kg

DRUGS (2)
  1. HUMIRA [Suspect]
     Indication: PSORIATIC ARTHROPATHY
     Route: 058
     Dates: start: 200901, end: 201301
  2. HUMIRA [Suspect]
     Route: 058
     Dates: start: 201306

REACTIONS (2)
  - Drug ineffective [Recovering/Resolving]
  - Arthralgia [Not Recovered/Not Resolved]
